FAERS Safety Report 8192122-7 (Version None)
Quarter: 2012Q1

REPORT INFORMATION
  Report Type: 
  Country: None (occurrence: None)
  Receive Date: 20120307
  Receipt Date: 20120301
  Transmission Date: 20120608
  Serious: Yes (Other)
  Sender: FDA-Public Use
  Company Number: CA-PFIZER INC-2012055681

PATIENT
  Age: 72 Year
  Sex: Female

DRUGS (1)
  1. ESTRING [Suspect]
     Indication: OESTROGEN DEFICIENCY
     Dosage: UNK
     Route: 067

REACTIONS (3)
  - ASTHENIA [None]
  - MALAISE [None]
  - BRADYCARDIA [None]
